FAERS Safety Report 16771994 (Version 2)
Quarter: 2020Q1

REPORT INFORMATION
  Report Type: Spontaneous
  Country: US (occurrence: US)
  Receive Date: 20190904
  Receipt Date: 20200323
  Transmission Date: 20200409
  Serious: Yes (Other)
  Sender: FDA-Public Use
  Company Number: US-GILEAD-2019-0425689

PATIENT
  Sex: Male

DRUGS (39)
  1. ENALAPRIL [Concomitant]
     Active Substance: ENALAPRIL
  2. ALLEGRA-D [Concomitant]
     Active Substance: FEXOFENADINE\PSEUDOEPHEDRINE
  3. METOPROLOL. [Concomitant]
     Active Substance: METOPROLOL
  4. CYCLOBENZAPRINE. [Concomitant]
     Active Substance: CYCLOBENZAPRINE
  5. ASPIRIN (E.C.) [Concomitant]
     Active Substance: ASPIRIN
  6. FAMCICLOVIR. [Concomitant]
     Active Substance: FAMCICLOVIR
  7. DOLUTEGRAVIR [Concomitant]
     Active Substance: DOLUTEGRAVIR
  8. TRICOR [ADENOSINE] [Concomitant]
     Active Substance: ADENOSINE
  9. HYDROCODONE/ACETAMINOPHEN [Concomitant]
     Active Substance: ACETAMINOPHEN\HYDROCODONE
  10. FLEXERIL [CEFIXIME] [Concomitant]
     Active Substance: CEFIXIME
  11. VITAMIN B12 [Concomitant]
     Active Substance: CYANOCOBALAMIN
  12. MECLIZINE HCL [Concomitant]
     Active Substance: MECLIZINE HYDROCHLORIDE
  13. CLINDAMYCIN. [Concomitant]
     Active Substance: CLINDAMYCIN
  14. ATRIPLA [Suspect]
     Active Substance: EFAVIRENZ\EMTRICITABINE\TENOFOVIR DISOPROXIL FUMARATE
     Indication: ACQUIRED IMMUNODEFICIENCY SYNDROME
  15. IRON [Concomitant]
     Active Substance: IRON
  16. FLUTICASONE. [Concomitant]
     Active Substance: FLUTICASONE
  17. TYLENOL WITH CODEINE [Concomitant]
     Active Substance: ACETAMINOPHEN\CODEINE PHOSPHATE
  18. VICKS NYQUIL SEVERE COLD + FLU [Concomitant]
  19. ATRIPLA [Suspect]
     Active Substance: EFAVIRENZ\EMTRICITABINE\TENOFOVIR DISOPROXIL FUMARATE
     Indication: HIV INFECTION
     Dosage: UNK
     Route: 048
     Dates: start: 20140806, end: 20160817
  20. GENVOYA [Concomitant]
     Active Substance: COBICISTAT\ELVITEGRAVIR\EMTRICITABINE\TENOFOVIR ALAFENAMIDE FUMARATE
  21. GABAPENTIN. [Concomitant]
     Active Substance: GABAPENTIN
  22. TENOFOVIR DISOPROXIL FUMARATE. [Concomitant]
     Active Substance: TENOFOVIR DISOPROXIL FUMARATE
  23. FAMVIR P [Concomitant]
  24. VIREAD [Suspect]
     Active Substance: TENOFOVIR DISOPROXIL FUMARATE
     Indication: HIV INFECTION
     Dosage: UNK
     Route: 048
     Dates: start: 20160908, end: 20171215
  25. DILTIAZEM. [Concomitant]
     Active Substance: DILTIAZEM
  26. ZIDOVUDINE. [Concomitant]
     Active Substance: ZIDOVUDINE
  27. ACYCLOVIR ABBOTT VIAL [Concomitant]
  28. TRAMADOL. [Concomitant]
     Active Substance: TRAMADOL
  29. AMOXICILLIN. [Concomitant]
     Active Substance: AMOXICILLIN
  30. TIVICAY [Concomitant]
     Active Substance: DOLUTEGRAVIR SODIUM
  31. CHLORASEPTIC SORE THROAT [BENZOCAINE;MENTHOL] [Concomitant]
  32. PRAVASTATIN. [Concomitant]
     Active Substance: PRAVASTATIN
  33. CEPHALEXINE [Concomitant]
     Active Substance: CEPHALEXIN
  34. ADVIL [IBUPROFEN] [Concomitant]
     Active Substance: IBUPROFEN
  35. DIGOXIN. [Concomitant]
     Active Substance: DIGOXIN
  36. DAPSONE. [Concomitant]
     Active Substance: DAPSONE
  37. HYDROXYZINE PAMOATE. [Concomitant]
     Active Substance: HYDROXYZINE PAMOATE
  38. CARVEDILOL. [Concomitant]
     Active Substance: CARVEDILOL
  39. FENOFIBRATE. [Concomitant]
     Active Substance: FENOFIBRATE

REACTIONS (7)
  - Pain [Not Recovered/Not Resolved]
  - Economic problem [Not Recovered/Not Resolved]
  - Chronic kidney disease [Not Recovered/Not Resolved]
  - Emotional distress [Not Recovered/Not Resolved]
  - Anhedonia [Not Recovered/Not Resolved]
  - Anxiety [Not Recovered/Not Resolved]
  - Multiple injuries [Unknown]

NARRATIVE: CASE EVENT DATE: 2016
